FAERS Safety Report 6554495-8 (Version None)
Quarter: 2010Q1

REPORT INFORMATION
  Report Type: 
  Country: None (occurrence: None)
  Receive Date: 20100122
  Receipt Date: 20100111
  Transmission Date: 20100710
  Serious: Yes (Other)
  Sender: FDA-Public Use
  Company Number: A-NJ2010-33163

PATIENT
  Age: 76 Year
  Sex: Female

DRUGS (3)
  1. TRACLEER [Suspect]
     Indication: PULMONARY ARTERIAL HYPERTENSION
     Dosage: ORAL
     Route: 048
     Dates: start: 20091209, end: 20091212
  2. REVATIO [Concomitant]
  3. WARFARIN SODIUM [Concomitant]

REACTIONS (1)
  - URINARY RETENTION [None]
